FAERS Safety Report 8083119-6 (Version None)
Quarter: 2012Q1

REPORT INFORMATION
  Report Type: 
  Country: None (occurrence: None)
  Receive Date: 20120130
  Receipt Date: 20120126
  Transmission Date: 20120608
  Serious: Yes (Life-Threatening, Hospitalization)
  Sender: FDA-Public Use
  Company Number: US-ASTRAZENECA-2012SE05514

PATIENT
  Age: 39 Year
  Sex: Female

DRUGS (3)
  1. SEROQUEL [Suspect]
     Indication: DEPRESSION
     Route: 048
  2. BUSPAR [Concomitant]
  3. VIIBRYD AS SPELLED BY THE PATIENT [Concomitant]

REACTIONS (3)
  - INSOMNIA [None]
  - SUICIDE ATTEMPT [None]
  - DRUG DOSE OMISSION [None]
